FAERS Safety Report 6449797-X (Version None)
Quarter: 2009Q4

REPORT INFORMATION
  Report Type: 
  Country: None (occurrence: None)
  Receive Date: 20091120
  Receipt Date: 20090302
  Transmission Date: 20100525
  Serious: Yes (Other)
  Sender: FDA-Public Use
  Company Number: US-AMGEN-QUU336704

PATIENT
  Sex: Female

DRUGS (4)
  1. ENBREL [Suspect]
     Indication: RHEUMATOID ARTHRITIS
     Route: 058
  2. MOBIC [Concomitant]
  3. PLAQUENIL [Concomitant]
  4. MULTI-VITAMINS [Concomitant]

REACTIONS (1)
  - BREAST CANCER [None]
